FAERS Safety Report 4960647-0 (Version None)
Quarter: 2006Q2

REPORT INFORMATION
  Report Type: 
  Country: None (occurrence: None)
  Receive Date: 20060403
  Receipt Date: 20051215
  Transmission Date: 20061013
  Serious: Yes (Other)
  Sender: FDA-Public Use
  Company Number: US-MERCK-0512USA02559

PATIENT
  Age: 50 Year
  Sex: Female
  Weight: 125 kg

DRUGS (10)
  1. VIOXX [Suspect]
     Indication: ARTHRITIS
     Route: 048
     Dates: start: 20010501, end: 20040401
  2. VIOXX [Suspect]
     Indication: BACK INJURY
     Route: 048
     Dates: start: 20010501, end: 20040401
  3. SYNTHROID [Concomitant]
     Indication: THYROID DISORDER
     Route: 065
  4. PREVACID [Concomitant]
     Indication: GASTROOESOPHAGEAL REFLUX DISEASE
     Route: 065
  5. PROZAC [Concomitant]
     Indication: DEPRESSION
     Route: 065
  6. EFFEXOR [Concomitant]
     Route: 065
  7. HYZAAR [Concomitant]
     Indication: BLOOD PRESSURE
     Route: 065
  8. ALLEGRA [Concomitant]
     Route: 065
  9. COVERA-HS [Concomitant]
     Route: 065
  10. ASPIRIN [Concomitant]
     Indication: CEREBROVASCULAR ACCIDENT PROPHYLAXIS
     Route: 065
     Dates: start: 19970101

REACTIONS (6)
  - ANXIETY [None]
  - DEPRESSION [None]
  - POST-TRAUMATIC STRESS DISORDER [None]
  - PULMONARY EMBOLISM [None]
  - PULMONARY THROMBOSIS [None]
  - THROMBOSIS [None]
